FAERS Safety Report 6038012-7 (Version None)
Quarter: 2009Q1

REPORT INFORMATION
  Report Type: 
  Country: None (occurrence: None)
  Receive Date: 20090115
  Receipt Date: 20090107
  Transmission Date: 20090719
  Serious: Yes (Death, Hospitalization)
  Sender: FDA-Public Use
  Company Number: FR-ABBOTT-09P-056-0496694-00

PATIENT
  Age: 23 Year
  Sex: Female

DRUGS (1)
  1. LEUPROLIDE ACETATE [Suspect]
     Indication: ENDOMETRIOSIS
     Route: 050
     Dates: start: 20040101

REACTIONS (3)
  - ABDOMINAL PAIN [None]
  - ACUTE PULMONARY OEDEMA [None]
  - CYST [None]
